FAERS Safety Report 5366343-2 (Version None)
Quarter: 2007Q2

REPORT INFORMATION
  Report Type: 
  Country: None (occurrence: None)
  Receive Date: 20070622
  Receipt Date: 20070611
  Transmission Date: 20071010
  Serious: Yes (Death)
  Sender: FDA-Public Use
  Company Number: HK-JNJFOC-20070602564

PATIENT
  Sex: Male

DRUGS (8)
  1. INFLIXIMAB [Suspect]
     Route: 042
  2. INFLIXIMAB [Suspect]
     Route: 042
  3. INFLIXIMAB [Suspect]
     Indication: RHEUMATOID ARTHRITIS
     Route: 042
  4. LEFLUNOMIDE [Concomitant]
     Indication: RHEUMATOID ARTHRITIS
     Route: 048
  5. ASPIRIN [Concomitant]
     Indication: CORONARY ARTERY DISEASE
  6. LISINOPRIL [Concomitant]
     Indication: HYPERTENSION
  7. SIMAVASTATIN [Concomitant]
     Indication: HYPERLIPIDAEMIA
  8. BETALOC [Concomitant]
     Indication: CORONARY ARTERY DISEASE

REACTIONS (2)
  - CANDIDA SEPSIS [None]
  - MULTI-ORGAN FAILURE [None]
